FAERS Safety Report 5031474-3 (Version None)
Quarter: 2006Q2

REPORT INFORMATION
  Report Type: 
  Country: None (occurrence: None)
  Receive Date: 20060616
  Receipt Date: 20060606
  Transmission Date: 20061013
  Serious: Yes (Other)
  Sender: FDA-Public Use
  Company Number: 2006-06-0676

PATIENT
  Age: 40 Year
  Sex: Male
  Weight: 83.4619 kg

DRUGS (3)
  1. PEG-INTRON (PEGINTERFERONE ALFA-2B) REDIPEN [Suspect]
     Indication: HEPATITIS C
     Dosage: SUBCUTANEOUS
     Route: 058
     Dates: start: 20060510
  2. RIBASPHERE [Suspect]
     Indication: HEPATITIS C
     Dosage: ORAL
     Route: 048
     Dates: start: 20060510
  3. ALBUTEROL SULFATE AEROSOL SOLUTION [Concomitant]

REACTIONS (25)
  - BLOOD IRON INCREASED [None]
  - CARDIAC FLUTTER [None]
  - CHILLS [None]
  - COAGULOPATHY [None]
  - DISTURBANCE IN ATTENTION [None]
  - DIZZINESS [None]
  - DRY MOUTH [None]
  - DYSGEUSIA [None]
  - DYSPHAGIA [None]
  - FATIGUE [None]
  - GINGIVAL BLEEDING [None]
  - HAEMATOMA [None]
  - HYPERHIDROSIS [None]
  - INFLUENZA [None]
  - IRRITABILITY [None]
  - MEMORY IMPAIRMENT [None]
  - MENTAL IMPAIRMENT [None]
  - MYALGIA [None]
  - NAUSEA [None]
  - ORAL INTAKE REDUCED [None]
  - PHARYNGOLARYNGEAL PAIN [None]
  - STRESS [None]
  - TONGUE DISORDER [None]
  - WEIGHT DECREASED [None]
  - WHITE BLOOD CELL COUNT DECREASED [None]
